FAERS Safety Report 20424724 (Version 1)
Quarter: 2022Q1

REPORT INFORMATION
  Report Type: Spontaneous
  Country: AU (occurrence: AU)
  Receive Date: 20220203
  Receipt Date: 20220203
  Transmission Date: 20220424
  Serious: No
  Sender: FDA-Public Use
  Company Number: AU-EXELIXIS-CABO-21037832

PATIENT
  Sex: Male

DRUGS (1)
  1. CABOMETYX [Suspect]
     Active Substance: CABOZANTINIB S-MALATE
     Indication: Product used for unknown indication
     Dosage: 40 MG 2 WEEKS ON/1 WEEK OFF REGIMEN, THEN 4 WEEKS ON/2 WEEK OFF REGIMEN

REACTIONS (2)
  - Hair colour changes [Unknown]
  - Inappropriate schedule of product administration [Unknown]
